FAERS Safety Report 5002663-9 (Version None)
Quarter: 2006Q2

REPORT INFORMATION
  Report Type: 
  Country: None (occurrence: None)
  Receive Date: 20060510
  Receipt Date: 20060427
  Transmission Date: 20061013
  Serious: Yes (Death)
  Sender: FDA-Public Use
  Company Number: 2004207008JP

PATIENT
  Age: 13 Year
  Sex: Female
  Weight: 33.3 kg

DRUGS (1)
  1. GENOTROPIN [Suspect]
     Indication: PRADER-WILLI SYNDROME
     Dosage: SUBCUTANEOUS
     Route: 058

REACTIONS (1)
  - DROWNING [None]
